FAERS Safety Report 21883674 (Version 1)
Quarter: 2023Q1

REPORT INFORMATION
  Report Type: Spontaneous
  Country: US (occurrence: None)
  Receive Date: 20230118
  Receipt Date: 20230118
  Transmission Date: 20230418
  Serious: Yes (Hospitalization)
  Sender: FDA-Public Use
  Company Number: None

PATIENT
  Age: 41 Year
  Sex: Female

DRUGS (2)
  1. AMBRISENTAN [Suspect]
     Active Substance: AMBRISENTAN
     Dosage: FREQUENCY : DAILY;?
     Route: 048
  2. DEVICE [Suspect]
     Active Substance: DEVICE

REACTIONS (3)
  - COVID-19 [None]
  - Pulmonary arterial hypertension [None]
  - Device programming error [None]

NARRATIVE: CASE EVENT DATE: 20221231
